FAERS Safety Report 5083520-9 (Version None)
Quarter: 2006Q3

REPORT INFORMATION
  Report Type: 
  Country: None (occurrence: None)
  Receive Date: 20060818
  Receipt Date: 20060811
  Transmission Date: 20061208
  Serious: Yes (Other)
  Sender: FDA-Public Use
  Company Number: PHEH2006US10286

PATIENT
  Age: 75 Year
  Sex: Female

DRUGS (3)
  1. ESIDRIX [Suspect]
  2. ENBREL [Concomitant]
     Dosage: 10 MG, BID
     Dates: start: 19940101
  3. MAXZIDE [Concomitant]
     Dosage: 1.5 TABS OF 50/75MG, QD

REACTIONS (4)
  - DRUG INEFFECTIVE [None]
  - DYSPNOEA [None]
  - HYPOTENSION [None]
  - MYOCARDIAL INFARCTION [None]
